FAERS Safety Report 23758085 (Version 1)
Quarter: 2024Q2

REPORT INFORMATION
  Report Type: Spontaneous
  Country: US (occurrence: US)
  Receive Date: 20240418
  Receipt Date: 20240418
  Transmission Date: 20240716
  Serious: Yes (Other)
  Sender: FDA-Public Use
  Company Number: US-GUERBET / LLC-US-20240060

PATIENT
  Age: 39 Year
  Sex: Female

DRUGS (1)
  1. OPTIRAY 320 [Suspect]
     Active Substance: IOVERSOL
     Indication: Angiogram cerebral

REACTIONS (1)
  - Encephalopathy [Recovering/Resolving]
